FAERS Safety Report 16356789 (Version 1)
Quarter: 2019Q2

REPORT INFORMATION
  Report Type: Report from Study
  Country: DE (occurrence: DE)
  Receive Date: 20190527
  Receipt Date: 20190527
  Transmission Date: 20190711
  Serious: Yes (Hospitalization, Other)
  Sender: FDA-Public Use
  Company Number: DE-BRISTOL-MYERS SQUIBB COMPANY-BMS-2019-043153

PATIENT
  Age: 68 Year
  Sex: Male

DRUGS (26)
  1. BISOPROLOL [Concomitant]
     Active Substance: BISOPROLOL
     Indication: CEREBROVASCULAR DISORDER
     Route: 065
  2. HCT [Concomitant]
     Active Substance: HYDROCHLOROTHIAZIDE
     Indication: CARDIOVASCULAR DISORDER
     Dosage: 25 MILLIGRAM
     Route: 065
  3. METFORMIN [Concomitant]
     Active Substance: METFORMIN HYDROCHLORIDE
     Indication: CEREBROVASCULAR DISORDER
     Route: 065
  4. XIPAMID [Concomitant]
     Active Substance: XIPAMIDE
     Indication: CARDIOVASCULAR DISORDER
     Dosage: 20 MILLIGRAM
     Route: 065
  5. DOXAZOSIN [Concomitant]
     Active Substance: DOXAZOSIN\DOXAZOSIN MESYLATE
     Indication: CARDIOVASCULAR DISORDER
     Dosage: 4 MILLIGRAM
     Route: 065
  6. TOREM COR [Concomitant]
     Active Substance: TORSEMIDE
     Indication: CARDIOVASCULAR DISORDER
     Dosage: 10 MILLIGRAM
     Route: 065
  7. ASPIRIN. [Concomitant]
     Active Substance: ASPIRIN
     Indication: CEREBROVASCULAR DISORDER
     Route: 065
  8. ZOMETA [Concomitant]
     Active Substance: ZOLEDRONIC ACID
     Indication: ADVERSE EVENT
     Dosage: 4 MILLIGRAM, Q4WK
     Route: 065
     Dates: start: 20180411
  9. SPIRIVA RESPIMAT [Concomitant]
     Active Substance: TIOTROPIUM BROMIDE
     Indication: LUNG DISORDER
     Dosage: 1 DOSAGE FORM
     Route: 065
  10. XIPAMID [Concomitant]
     Active Substance: XIPAMIDE
     Indication: CEREBROVASCULAR DISORDER
     Route: 065
  11. NIVOLUMAB [Suspect]
     Active Substance: NIVOLUMAB
     Indication: NON-SMALL CELL LUNG CANCER
     Dosage: 3 MILLIGRAM/KILOGRAM, Q2WK
     Route: 042
     Dates: start: 20180626, end: 20181224
  12. SIMVASTATIN. [Concomitant]
     Active Substance: SIMVASTATIN
     Indication: CEREBROVASCULAR DISORDER
     Route: 065
  13. JARDIANCE [Concomitant]
     Active Substance: EMPAGLIFLOZIN
     Indication: CEREBROVASCULAR DISORDER
     Route: 065
  14. SIMVASTATIN. [Concomitant]
     Active Substance: SIMVASTATIN
     Indication: CARDIOVASCULAR DISORDER
     Dosage: 20 MILLIGRAM
     Route: 065
  15. CANDESARTAN. [Concomitant]
     Active Substance: CANDESARTAN
     Indication: CEREBROVASCULAR DISORDER
     Route: 065
  16. AMIODARON - 1 A PHARMA [Concomitant]
     Active Substance: AMIODARONE
     Indication: CARDIOVASCULAR DISORDER
     Dosage: 100 MILLIGRAM
     Route: 065
  17. DOXAZOSIN [Concomitant]
     Active Substance: DOXAZOSIN\DOXAZOSIN MESYLATE
     Indication: CEREBROVASCULAR DISORDER
     Route: 065
  18. JARDIANCE [Concomitant]
     Active Substance: EMPAGLIFLOZIN
     Indication: CARDIOVASCULAR DISORDER
     Dosage: 25 MILLIGRAM
     Route: 065
  19. HUMAN INSULIN [Concomitant]
     Active Substance: INSULIN HUMAN
     Indication: METABOLIC DISORDER
     Dosage: 44 INTERNATIONAL UNIT
     Route: 065
  20. METFORMIN [Concomitant]
     Active Substance: METFORMIN HYDROCHLORIDE
     Indication: CARDIOVASCULAR DISORDER
     Dosage: 2000 MILLIGRAM
     Route: 065
  21. TOREM COR [Concomitant]
     Active Substance: TORSEMIDE
     Indication: CEREBROVASCULAR DISORDER
     Route: 065
  22. HUMALOG [Concomitant]
     Active Substance: INSULIN LISPRO
     Indication: METABOLIC DISORDER
     Dosage: 1 DOSAGE FORM
     Route: 065
  23. BISOPROLOL [Concomitant]
     Active Substance: BISOPROLOL
     Indication: CARDIOVASCULAR DISORDER
     Dosage: 10 MILLIGRAM
     Route: 065
  24. CANDESARTAN. [Concomitant]
     Active Substance: CANDESARTAN
     Indication: CARDIOVASCULAR DISORDER
     Dosage: 32 MILLIGRAM
     Route: 065
  25. HCT [Concomitant]
     Active Substance: HYDROCHLOROTHIAZIDE
     Indication: CEREBROVASCULAR DISORDER
     Route: 065
  26. ASPIRIN. [Concomitant]
     Active Substance: ASPIRIN
     Indication: CARDIOVASCULAR DISORDER
     Dosage: 100 MILLIGRAM
     Route: 065

REACTIONS (4)
  - Malignant neoplasm progression [Not Recovered/Not Resolved]
  - Tremor [Recovered/Resolved]
  - Cardiac failure [Recovered/Resolved]
  - Hypothyroidism [Unknown]

NARRATIVE: CASE EVENT DATE: 20180821
